FAERS Safety Report 15891777 (Version 1)
Quarter: 2019Q1

REPORT INFORMATION
  Report Type: Spontaneous
  Country: FR (occurrence: FR)
  Receive Date: 20190130
  Receipt Date: 20190130
  Transmission Date: 20190417
  Serious: Yes (Hospitalization, Other)
  Sender: FDA-Public Use
  Company Number: FR-PFIZER INC-2019035134

PATIENT
  Age: 15 Year
  Sex: Male
  Weight: 51 kg

DRUGS (3)
  1. DACTINOMYCINE [Suspect]
     Active Substance: DACTINOMYCIN
     Indication: ALVEOLAR RHABDOMYOSARCOMA
     Dosage: 1.5 MG/M2, CYCLIC (EVERY 21 DAYS)
     Route: 042
     Dates: start: 20180918, end: 20180918
  2. VINCRISTINE SULFATE. [Suspect]
     Active Substance: VINCRISTINE SULFATE
     Indication: ALVEOLAR RHABDOMYOSARCOMA
     Dosage: 1.5 MG/M2, CYCLIC (EVERY 21 DAYS)
     Route: 042
     Dates: start: 20180918, end: 20180918
  3. IFOSFAMIDE EG [Suspect]
     Active Substance: IFOSFAMIDE
     Indication: RHABDOMYOSARCOMA
     Dosage: 3000 MG/M2, CYCLIC (EVERY 21 DAYS)
     Route: 042
     Dates: start: 20180918, end: 20180918

REACTIONS (1)
  - Tonic clonic movements [Recovered/Resolved]

NARRATIVE: CASE EVENT DATE: 20180918
